FAERS Safety Report 23867975 (Version 1)
Quarter: 2024Q2

REPORT INFORMATION
  Report Type: Spontaneous
  Country: US (occurrence: None)
  Receive Date: 20240516
  Receipt Date: 20240516
  Transmission Date: 20240716
  Serious: Yes (Hospitalization)
  Sender: FDA-Public Use
  Company Number: None

PATIENT
  Age: 26 Year
  Sex: Male
  Weight: 57.1 kg

DRUGS (7)
  1. PHENYTOIN [Suspect]
     Active Substance: PHENYTOIN
     Indication: Seizure
     Route: 048
     Dates: start: 20240408, end: 20240430
  2. LACOSAMIDE [Suspect]
     Active Substance: LACOSAMIDE
     Indication: Seizure
     Dosage: FREQUENCY : TWICE A DAY;?
     Route: 048
     Dates: start: 20240408, end: 20240430
  3. LEVETIRACETAM [Suspect]
     Active Substance: LEVETIRACETAM
     Dates: start: 20240408
  4. DEPAKOTE [Suspect]
     Active Substance: DIVALPROEX SODIUM
  5. DIVALPROEX SODIUM DR [Concomitant]
     Active Substance: DIVALPROEX SODIUM
  6. VALACYCLOVIR [Concomitant]
     Active Substance: VALACYCLOVIR HYDROCHLORIDE
  7. ATORVASTATIN [Concomitant]
     Active Substance: ATORVASTATIN

REACTIONS (4)
  - Stevens-Johnson syndrome [None]
  - Exfoliative rash [None]
  - Epidermal necrosis [None]
  - Inflammation [None]

NARRATIVE: CASE EVENT DATE: 20240419
